FAERS Safety Report 22078325 (Version 1)
Quarter: 2023Q1

REPORT INFORMATION
  Report Type: Spontaneous
  Country: US (occurrence: None)
  Receive Date: 20230308
  Receipt Date: 20230308
  Transmission Date: 20230417
  Serious: Yes (Other)
  Sender: FDA-Public Use
  Company Number: None

PATIENT
  Age: 52 Year
  Sex: Male
  Weight: 86.4 kg

DRUGS (1)
  1. ROSUVASTATIN [Suspect]
     Active Substance: ROSUVASTATIN
     Indication: Dyslipidaemia
     Dosage: FREQUENCY : DAILY;?
     Route: 048
     Dates: start: 20230207, end: 20230221

REACTIONS (2)
  - Medial tibial stress syndrome [None]
  - Chromaturia [None]

NARRATIVE: CASE EVENT DATE: 20230308
